FAERS Safety Report 20547425 (Version 3)
Quarter: 2022Q2

REPORT INFORMATION
  Report Type: Report from Study
  Country: CN (occurrence: CN)
  Receive Date: 20220303
  Receipt Date: 20220425
  Transmission Date: 20220721
  Serious: Yes (Hospitalization)
  Sender: FDA-Public Use
  Company Number: CN-PFIZER INC-202200330237

PATIENT
  Age: 76 Year
  Sex: Male
  Weight: 55 kg

DRUGS (3)
  1. EPIRUBICIN HYDROCHLORIDE [Suspect]
     Active Substance: EPIRUBICIN HYDROCHLORIDE
     Indication: Bladder cancer recurrent
     Dosage: 50 MG, WEEKLY, PERFUSION, AIDASHENG
     Dates: start: 20170915, end: 20171127
  2. EPIRUBICIN HYDROCHLORIDE [Suspect]
     Active Substance: EPIRUBICIN HYDROCHLORIDE
     Dosage: 50 MG, MONTHLY; PERFUSION, AIDASHENG
     Dates: start: 20171229, end: 20180824
  3. INVESTIGATIONAL PRODUCT [Suspect]
     Active Substance: INVESTIGATIONAL PRODUCT
     Indication: Bladder cancer recurrent
     Dosage: UNK, 3X/DAY
     Route: 048
     Dates: start: 20170915, end: 20190610

REACTIONS (1)
  - Urinary tract infection [Recovered/Resolved]

NARRATIVE: CASE EVENT DATE: 20170918
